FAERS Safety Report 16098588 (Version 1)
Quarter: 2019Q1

REPORT INFORMATION
  Report Type: Spontaneous
  Country: US (occurrence: US)
  Receive Date: 20190321
  Receipt Date: 20190321
  Transmission Date: 20190418
  Serious: No
  Sender: FDA-Public Use
  Company Number: US-DRREDDYS-USA/USA/19/0108683

PATIENT
  Age: 27 Year
  Sex: Male
  Weight: 90 kg

DRUGS (1)
  1. DOANS PAIN RELIEVING [Suspect]
     Active Substance: LIDOCAINE\MENTHOL
     Indication: PAIN IN EXTREMITY
     Route: 062
     Dates: start: 20190304

REACTIONS (2)
  - Application site rash [Recovering/Resolving]
  - Hypersensitivity [Recovering/Resolving]

NARRATIVE: CASE EVENT DATE: 20190305
